FAERS Safety Report 10860314 (Version 1)
Quarter: 2015Q1

REPORT INFORMATION
  Report Type: Spontaneous
  Country: US (occurrence: US)
  Receive Date: 20150223
  Receipt Date: 20150223
  Transmission Date: 20150721
  Serious: No
  Sender: FDA-Public Use
  Company Number: US-CELGENEUS-163-21880-11102094

PATIENT
  Sex: Female
  Weight: 64.92 kg

DRUGS (9)
  1. REVLIMID [Suspect]
     Active Substance: LENALIDOMIDE
     Dosage: 10-5MG
     Route: 048
     Dates: start: 201104
  2. CYTOXAN [Concomitant]
     Active Substance: CYCLOPHOSPHAMIDE
     Indication: PRODUCT USED FOR UNKNOWN INDICATION
     Route: 065
  3. REVLIMID [Suspect]
     Active Substance: LENALIDOMIDE
     Route: 048
     Dates: start: 201107
  4. REVLIMID [Suspect]
     Active Substance: LENALIDOMIDE
     Route: 048
     Dates: start: 201110
  5. REVLIMID [Suspect]
     Active Substance: LENALIDOMIDE
     Indication: PLASMA CELL MYELOMA
     Route: 048
     Dates: start: 201104
  6. VELCADE [Concomitant]
     Active Substance: BORTEZOMIB
     Indication: PRODUCT USED FOR UNKNOWN INDICATION
     Route: 065
  7. SYNTHROID [Concomitant]
     Active Substance: LEVOTHYROXINE SODIUM
     Indication: PRODUCT USED FOR UNKNOWN INDICATION
     Route: 065
  8. TINORMIN [Concomitant]
     Indication: PRODUCT USED FOR UNKNOWN INDICATION
     Route: 065
  9. PREDNISONE. [Concomitant]
     Active Substance: PREDNISONE
     Indication: PRODUCT USED FOR UNKNOWN INDICATION
     Route: 065

REACTIONS (20)
  - Basophil count increased [Unknown]
  - Dyspnoea [Unknown]
  - Myalgia [Unknown]
  - Lacrimation increased [Unknown]
  - White blood cell count decreased [Unknown]
  - Blood potassium decreased [Unknown]
  - Neuropathy peripheral [Recovered/Resolved]
  - Dry eye [Unknown]
  - Rash [Unknown]
  - Drug ineffective [Unknown]
  - Constipation [Recovered/Resolved]
  - Hepatic enzyme increased [Unknown]
  - Muscle spasms [Recovered/Resolved]
  - Full blood count decreased [Unknown]
  - Dysgeusia [Unknown]
  - Dyspepsia [Unknown]
  - Decreased appetite [Unknown]
  - Medial tibial stress syndrome [Unknown]
  - Neutrophil count decreased [Unknown]
  - Nausea [Unknown]
